FAERS Safety Report 5710483-2 (Version None)
Quarter: 2008Q2

REPORT INFORMATION
  Report Type: 
  Country: None (occurrence: None)
  Receive Date: 20080418
  Receipt Date: 20080407
  Transmission Date: 20081010
  Serious: Yes (Hospitalization)
  Sender: FDA-Public Use
  Company Number: PHHY2008TR04164

PATIENT
  Age: 9 Year
  Sex: Male

DRUGS (4)
  1. TOBI [Suspect]
     Indication: CYSTIC FIBROSIS
     Dosage: 300 MG, QD
     Dates: start: 20030101, end: 20070901
  2. PULMOZYME [Concomitant]
  3. STEROIDS NOS [Concomitant]
  4. GENTAMICIN [Suspect]

REACTIONS (3)
  - INFECTION [None]
  - ORAL DISORDER [None]
  - PYREXIA [None]
